FAERS Safety Report 8844644 (Version 1)
Quarter: 2012Q4

REPORT INFORMATION
  Report Type: 
  Country: US (occurrence: US)
  Receive Date: 20121017
  Receipt Date: 20121017
  Transmission Date: 20130627
  Serious: No
  Sender: FDA-Public Use
  Company Number: US-PFIZER INC-2012257240

PATIENT
  Age: 39 Year
  Sex: Female

DRUGS (1)
  1. ATORVASTATIN CALCIUM [Suspect]
     Indication: BLOOD CHOLESTEROL ABNORMAL
     Dosage: 1 DF, 1x/day
     Route: 048
     Dates: start: 2012, end: 2012

REACTIONS (2)
  - Dyspepsia [Unknown]
  - Malaise [Unknown]
